FAERS Safety Report 9242881 (Version 1)
Quarter: 2013Q2

REPORT INFORMATION
  Report Type: Spontaneous
  Country: US (occurrence: US)
  Receive Date: 20130419
  Receipt Date: 20130419
  Transmission Date: 20140414
  Serious: Yes (Hospitalization, Other)
  Sender: FDA-Public Use
  Company Number: US-TEVA-398917USA

PATIENT
  Age: 54 Year
  Sex: Male

DRUGS (1)
  1. FLUDARABINE [Suspect]
     Indication: CHRONIC LYMPHOCYTIC LEUKAEMIA
     Route: 065
     Dates: start: 2004

REACTIONS (4)
  - Varicella [Recovering/Resolving]
  - Hepatitis [Recovering/Resolving]
  - Pancreatitis [Recovering/Resolving]
  - Ileus [Recovering/Resolving]
